FAERS Safety Report 5047562-1 (Version None)
Quarter: 2006Q3

REPORT INFORMATION
  Report Type: 
  Country: None (occurrence: None)
  Receive Date: 20060711
  Receipt Date: 20060707
  Transmission Date: 20061208
  Serious: Yes (Death)
  Sender: FDA-Public Use
  Company Number: PHEH2006US08712

PATIENT
  Age: 36 Year
  Sex: Male

DRUGS (1)
  1. EXJADE [Suspect]
     Indication: IRON DEFICIENCY
     Dosage: 1500 MG, QD
     Dates: start: 20060419

REACTIONS (1)
  - DEATH [None]
